FAERS Safety Report 7831882-9 (Version None)
Quarter: 2011Q4

REPORT INFORMATION
  Report Type: 
  Country: None (occurrence: None)
  Receive Date: 20111021
  Receipt Date: 20111017
  Transmission Date: 20120403
  Serious: Yes (Death)
  Sender: FDA-Public Use
  Company Number: US-ELI_LILLY_AND_COMPANY-US201110004380

PATIENT
  Age: 73 Year
  Sex: Female
  Weight: 95.5 kg

DRUGS (3)
  1. GEMCITABINE HYDROCHLORIDE [Suspect]
     Indication: NON-SMALL CELL LUNG CANCER
     Dosage: 1000 MG/M2, DAYS 1 AND 8
     Route: 042
     Dates: start: 20110921
  2. BLINDED THERAPY [Suspect]
     Indication: NON-SMALL CELL LUNG CANCER
     Dosage: 400 MG, BID, DAYS 1 TO 21 FOR CYCLES 1-6
     Route: 048
     Dates: start: 20110921
  3. CARBOPLATIN [Suspect]
     Indication: NON-SMALL CELL LUNG CANCER
     Dosage: 5.5 AUC, DAY 1
     Route: 042
     Dates: start: 20110921

REACTIONS (4)
  - UNRESPONSIVE TO STIMULI [None]
  - DEATH [None]
  - MYOCARDIAL INFARCTION [None]
  - PULMONARY EMBOLISM [None]
